FAERS Safety Report 16838607 (Version 1)
Quarter: 2019Q3

REPORT INFORMATION
  Report Type: Spontaneous
  Country: US (occurrence: US)
  Receive Date: 20190731
  Receipt Date: 20190731
  Transmission Date: 20191005
  Serious: No
  Sender: FDA-Public Use
  Company Number: None

PATIENT
  Sex: Female

DRUGS (12)
  1. OCALIVA [Suspect]
     Active Substance: OBETICHOLIC ACID
     Indication: PRIMARY BILIARY CHOLANGITIS
     Route: 048
     Dates: start: 20180919
  2. COLESEVELAM [Concomitant]
     Active Substance: COLESEVELAM
  3. TOUJEO [Concomitant]
     Active Substance: INSULIN GLARGINE
  4. HYOSCYAMINE. [Concomitant]
     Active Substance: HYOSCYAMINE
  5. CREON [Concomitant]
     Active Substance: PANCRELIPASE AMYLASE\PANCRELIPASE LIPASE\PANCRELIPASE PROTEASE
  6. RAMIPRIL. [Concomitant]
     Active Substance: RAMIPRIL
  7. VENLAFAXINE [Concomitant]
     Active Substance: VENLAFAXINE HYDROCHLORIDE
  8. LEVOTHYROXINE. [Concomitant]
     Active Substance: LEVOTHYROXINE
  9. NOVOLOG [Concomitant]
     Active Substance: INSULIN ASPART
  10. PREMARIN [Concomitant]
     Active Substance: ESTROGENS, CONJUGATED
  11. AMITRIPTYLIN [Concomitant]
     Active Substance: AMITRIPTYLINE
  12. TOPIRAMATE. [Concomitant]
     Active Substance: TOPIRAMATE

REACTIONS (2)
  - Migraine [None]
  - Therapy cessation [None]
